FAERS Safety Report 26187089 (Version 1)
Quarter: 2025Q4

REPORT INFORMATION
  Report Type: Report from Study
  Country: US (occurrence: US)
  Receive Date: 20251222
  Receipt Date: 20251222
  Transmission Date: 20260118
  Serious: Yes (Hospitalization, Other)
  Sender: MYLAN
  Company Number: US-MYLANLABS-2025M1107962

PATIENT
  Sex: Male
  Weight: 95.25 kg

DRUGS (28)
  1. METOPROLOL [Interacting]
     Active Substance: METOPROLOL
     Indication: Angina pectoris
     Dosage: 25 MILLIGRAM, BID (TWICE A DAY)
     Dates: start: 202501
  2. METOPROLOL [Interacting]
     Active Substance: METOPROLOL
     Dosage: 25 MILLIGRAM, BID (TWICE A DAY)
     Route: 065
     Dates: start: 202501
  3. METOPROLOL [Interacting]
     Active Substance: METOPROLOL
     Dosage: 25 MILLIGRAM, BID (TWICE A DAY)
     Route: 065
     Dates: start: 202501
  4. METOPROLOL [Interacting]
     Active Substance: METOPROLOL
     Dosage: 25 MILLIGRAM, BID (TWICE A DAY)
     Dates: start: 202501
  5. LASIX [Interacting]
     Active Substance: FUROSEMIDE
     Indication: Product used for unknown indication
     Dosage: UNK
  6. LASIX [Interacting]
     Active Substance: FUROSEMIDE
     Dosage: UNK
     Route: 065
  7. LASIX [Interacting]
     Active Substance: FUROSEMIDE
     Dosage: UNK
     Route: 065
  8. LASIX [Interacting]
     Active Substance: FUROSEMIDE
     Dosage: UNK
  9. ATORVASTATIN [Concomitant]
     Active Substance: ATORVASTATIN
     Indication: Blood cholesterol increased
     Dosage: UNK
  10. ATORVASTATIN [Concomitant]
     Active Substance: ATORVASTATIN
     Dosage: UNK
     Route: 065
  11. ATORVASTATIN [Concomitant]
     Active Substance: ATORVASTATIN
     Dosage: UNK
     Route: 065
  12. ATORVASTATIN [Concomitant]
     Active Substance: ATORVASTATIN
     Dosage: UNK
  13. AMLODIPINE AND VALSARTAN [Concomitant]
     Active Substance: AMLODIPINE\VALSARTAN
     Indication: Hypertension
     Dosage: UNK
  14. AMLODIPINE AND VALSARTAN [Concomitant]
     Active Substance: AMLODIPINE\VALSARTAN
     Dosage: UNK
     Route: 065
  15. AMLODIPINE AND VALSARTAN [Concomitant]
     Active Substance: AMLODIPINE\VALSARTAN
     Dosage: UNK
     Route: 065
  16. AMLODIPINE AND VALSARTAN [Concomitant]
     Active Substance: AMLODIPINE\VALSARTAN
     Dosage: UNK
  17. ASPIRIN [Concomitant]
     Active Substance: ASPIRIN
     Dosage: UNK
  18. ASPIRIN [Concomitant]
     Active Substance: ASPIRIN
     Dosage: UNK
     Route: 065
  19. ASPIRIN [Concomitant]
     Active Substance: ASPIRIN
     Dosage: UNK
     Route: 065
  20. ASPIRIN [Concomitant]
     Active Substance: ASPIRIN
     Dosage: UNK
  21. CALTRATE [Concomitant]
     Active Substance: CALCIUM CARBONATE
     Dosage: UNK
  22. CALTRATE [Concomitant]
     Active Substance: CALCIUM CARBONATE
     Dosage: UNK
     Route: 065
  23. CALTRATE [Concomitant]
     Active Substance: CALCIUM CARBONATE
     Dosage: UNK
     Route: 065
  24. CALTRATE [Concomitant]
     Active Substance: CALCIUM CARBONATE
     Dosage: UNK
  25. CEFDINIR [Concomitant]
     Active Substance: CEFDINIR
     Dosage: UNK (300)
  26. CEFDINIR [Concomitant]
     Active Substance: CEFDINIR
     Dosage: UNK (300)
     Route: 065
  27. CEFDINIR [Concomitant]
     Active Substance: CEFDINIR
     Dosage: UNK (300)
     Route: 065
  28. CEFDINIR [Concomitant]
     Active Substance: CEFDINIR
     Dosage: UNK (300)

REACTIONS (5)
  - Catheter site haemorrhage [Unknown]
  - Myocardial infarction [Unknown]
  - Urinary retention [Unknown]
  - Drug interaction [Unknown]
  - Blood sodium decreased [Unknown]

NARRATIVE: CASE EVENT DATE: 20250126
